FAERS Safety Report 10220323 (Version 1)
Quarter: 2014Q2

REPORT INFORMATION
  Report Type: Spontaneous
  Country: US (occurrence: US)
  Receive Date: 20140606
  Receipt Date: 20140606
  Transmission Date: 20141212
  Serious: Yes (Other)
  Sender: FDA-Public Use
  Company Number: US-BEH-2014042881

PATIENT
  Sex: Female
  Weight: 121 kg

DRUGS (13)
  1. HIZENTRA [Suspect]
     Indication: HYPOGAMMAGLOBULINAEMIA
     Dosage: INFUSE VIA 2 SITES OVER 1 HOUR
     Route: 058
  2. HIZENTRA [Suspect]
     Indication: HYPOGAMMAGLOBULINAEMIA
     Dosage: INFUSE VIA 2 SITES OVER 1 HOUR
     Route: 058
  3. MULTIVITAMINS [Concomitant]
  4. VITAMIN B-12 [Concomitant]
  5. VITAMIN D3 [Concomitant]
  6. CATS CLAW [Concomitant]
  7. TUMERIC [Concomitant]
  8. GRAPE SEED EXTRACT [Concomitant]
  9. OLIVE LEAF [Concomitant]
  10. MILK THISTLE [Concomitant]
  11. EPI PEN [Concomitant]
  12. LIDOCAINE/PRILOCAINE [Concomitant]
  13. MAGNESIUM [Concomitant]

REACTIONS (3)
  - Lyme disease [Not Recovered/Not Resolved]
  - Pain [Unknown]
  - Pain [Unknown]
